FAERS Safety Report 14882988 (Version 18)
Quarter: 2018Q4

REPORT INFORMATION
  Report Type: Report from Study
  Country: IT (occurrence: US)
  Receive Date: 20180511
  Receipt Date: 20181221
  Transmission Date: 20190204
  Serious: Yes (Hospitalization, Other)
  Sender: FDA-Public Use
  Company Number: IT-PFIZER INC-2018192684

PATIENT
  Age: 78 Year
  Sex: Female
  Weight: 109 kg

DRUGS (7)
  1. ITRACONAZOLE. [Interacting]
     Active Substance: ITRACONAZOLE
     Dosage: UNK
     Route: 065
  2. RAMIPRIL. [Suspect]
     Active Substance: RAMIPRIL
     Dosage: UNK
     Route: 048
  3. ACETYLSALICYLIC ACID [Interacting]
     Active Substance: ASPIRIN
     Dosage: UNK
     Route: 065
  4. METOPROLOL TARTRATE. [Interacting]
     Active Substance: METOPROLOL TARTRATE
     Dosage: UNK
     Route: 065
  5. INFLUENZA VACCINE TRIVALENT [Interacting]
     Active Substance: INFLUENZA VIRUS VACCINE TRIVALENT TYPE A+B
     Indication: IMMUNISATION
     Dosage: UNK
     Route: 065
  6. SIMVASTATIN. [Interacting]
     Active Substance: SIMVASTATIN
     Dosage: UNK
     Route: 065
  7. ENOXAPARIN SODIUM. [Interacting]
     Active Substance: ENOXAPARIN SODIUM
     Dosage: UNK
     Route: 065

REACTIONS (3)
  - Skin candida [Unknown]
  - Rhabdomyolysis [Unknown]
  - Drug interaction [Unknown]
